FAERS Safety Report 8924500 (Version 1)
Quarter: 2012Q4

REPORT INFORMATION
  Report Type: 
  Country: US (occurrence: None)
  Receive Date: 20121121
  Receipt Date: 20121121
  Transmission Date: 20130627
  Serious: Yes (Hospitalization)
  Sender: FDA-Public Use
  Company Number: None

PATIENT
  Sex: Female
  Weight: 67.13 kg

DRUGS (1)
  1. CISPLATIN [Suspect]

REACTIONS (4)
  - Pyelonephritis [None]
  - Culture urine positive [None]
  - Pseudomonas test positive [None]
  - Enterobacter test positive [None]
